FAERS Safety Report 8585436-X (Version None)
Quarter: 2012Q3

REPORT INFORMATION
  Report Type: 
  Country: None (occurrence: None)
  Receive Date: 20120810
  Receipt Date: 20120803
  Transmission Date: 20120928
  Serious: Yes (Hospitalization, Other)
  Sender: FDA-Public Use
  Company Number: PR-ABBOTT-12P-131-0940212-00

PATIENT
  Sex: Female
  Weight: 89.892 kg

DRUGS (19)
  1. LASIX [Concomitant]
     Indication: HYPERTENSION
     Route: 048
  2. LOSARTAN POTASSIUM [Concomitant]
     Indication: HYPERTENSION
     Route: 048
  3. TAMBOCOR [Concomitant]
     Indication: ARRHYTHMIA
     Route: 048
  4. VITAMIN D [Concomitant]
     Indication: PRODUCT USED FOR UNKNOWN INDICATION
     Route: 048
     Dates: end: 20120622
  5. XARELTO [Concomitant]
     Indication: CEREBROVASCULAR ACCIDENT
     Route: 048
  6. VITAMIN B-12 [Concomitant]
     Indication: CEREBROVASCULAR ACCIDENT
     Route: 048
  7. CELEBREX [Concomitant]
     Indication: LUMBAR SPINAL STENOSIS
  8. NOVOLOG [Concomitant]
     Indication: DIABETES MELLITUS
     Route: 058
  9. DIGOXIN [Concomitant]
     Indication: HYPERTENSION
     Route: 048
  10. VERAPAMIL [Concomitant]
     Dosage: IN PM
  11. PREDNISONE TAB [Concomitant]
     Indication: PULMONARY FIBROSIS
  12. IMURAN [Concomitant]
     Indication: LUMBAR SPINAL STENOSIS
     Route: 048
  13. LEVEMIR [Concomitant]
     Indication: DIABETES MELLITUS
     Route: 058
  14. ATROVENT [Concomitant]
     Indication: PULMONARY FIBROSIS
     Dosage: EVERY 6 HOUR PRN, ORAL INHALATION
  15. HUMIRA [Suspect]
     Route: 058
  16. VERAPAMIL [Concomitant]
     Indication: ARRHYTHMIA
     Dosage: IN AM
     Route: 048
  17. HUMIRA [Suspect]
     Route: 058
     Dates: start: 20120615, end: 20120720
  18. PULMICORT [Concomitant]
     Indication: PULMONARY FIBROSIS
     Dosage: EVERY 4 HOURS PRN; ORAL INHALATION
  19. HUMIRA [Suspect]
     Indication: RHEUMATOID ARTHRITIS
     Route: 058
     Dates: start: 20120201, end: 20120525

REACTIONS (8)
  - DYSPNOEA [None]
  - PLEURITIC PAIN [None]
  - LUMBAR SPINAL STENOSIS [None]
  - FATIGUE [None]
  - LUNG DISORDER [None]
  - PNEUMONIA [None]
  - SPINAL COMPRESSION FRACTURE [None]
  - HERPES ZOSTER [None]
